FAERS Safety Report 9227644 (Version 1)
Quarter: 2013Q1

REPORT INFORMATION
  Report Type: Spontaneous
  Country: US (occurrence: None)
  Receive Date: 20121012
  Receipt Date: 20121012
  Transmission Date: 20140127
  Serious: No
  Sender: FDA-Public Use
  Company Number: AXC-2012-000252

PATIENT
  Sex: Male

DRUGS (15)
  1. CARAFATE (SUCRALFATE) TABLET, 1G [Suspect]
     Indication: PRODUCT USED FOR UNKNOWN INDICATION
     Route: 048
  2. PSYLLIUM [Concomitant]
  3. NEXIUM [Concomitant]
  4. BARIUM (BARIUM) [Concomitant]
  5. ASPIRIN (ACETYLSALICYLIC ACID) [Concomitant]
  6. ATENOLOL (ATENOLOL) [Concomitant]
  7. VITAMIN D [Concomitant]
  8. CYCLOBENZAPRINE (CYCLOBENZAPRINE) [Concomitant]
  9. FUROSEMIDE (FUROSEMIDE) [Concomitant]
  10. HYDROCODONE/ACETAMINOPHEN [Concomitant]
  11. INSULIN (INSULIN) [Concomitant]
  12. METFORMIN (METFORMIN) [Concomitant]
  13. SERTRALINE (SERTRALINE) [Concomitant]
  14. LOSARTAN [Concomitant]
  15. POLYETHYLENE GLYCOL (MACROGOL) POWER (EXCEPT (DPO) [Concomitant]

REACTIONS (1)
  - Bezoar [None]
